FAERS Safety Report 23341022 (Version 5)
Quarter: 2024Q4

REPORT INFORMATION
  Report Type: Report from Study
  Country: US (occurrence: US)
  Receive Date: 20231227
  Receipt Date: 20241121
  Transmission Date: 20250114
  Serious: Yes (Hospitalization)
  Sender: TAKEDA
  Company Number: US-TAKEDA-2023TUS123321

PATIENT
  Sex: Female

DRUGS (7)
  1. MARIBAVIR [Interacting]
     Active Substance: MARIBAVIR
     Indication: Cytomegalovirus infection
     Dosage: 400 MILLIGRAM, BID
     Dates: start: 20231216
  2. MARIBAVIR [Interacting]
     Active Substance: MARIBAVIR
     Dosage: 400 MILLIGRAM, BID
  3. MARIBAVIR [Interacting]
     Active Substance: MARIBAVIR
     Dosage: 400 MILLIGRAM, BID
  4. MARIBAVIR [Interacting]
     Active Substance: MARIBAVIR
     Dosage: 400 MILLIGRAM, BID
  5. TACROLIMUS [Suspect]
     Active Substance: TACROLIMUS
     Indication: Product used for unknown indication
     Dosage: UNK
  6. SYNTHROID [Suspect]
     Active Substance: LEVOTHYROXINE SODIUM
     Indication: Product used for unknown indication
     Dosage: UNK
  7. MAGNESIUM OXIDE [Concomitant]
     Active Substance: MAGNESIUM OXIDE
     Dosage: 400 MILLIGRAM

REACTIONS (5)
  - Hip arthroplasty [Unknown]
  - Drug interaction [Unknown]
  - Myalgia [Unknown]
  - Dysgeusia [Unknown]
  - Drug level increased [Unknown]
